FAERS Safety Report 4444450-6 (Version None)
Quarter: 2004Q3

REPORT INFORMATION
  Report Type: 
  Country: None (occurrence: None)
  Receive Date: 20040902
  Receipt Date: 20040816
  Transmission Date: 20050211
  Serious: Yes (Hospitalization)
  Sender: FDA-Public Use
  Company Number: USA040875658

PATIENT
  Age: 57 Year
  Sex: Female
  Weight: 60 kg

DRUGS (7)
  1. FORTEO [Suspect]
     Indication: OSTEOPOROSIS
     Dosage: 20 UG/1 DAY
     Dates: start: 20030101
  2. CALCIUM WITH VITAMIN D [Concomitant]
  3. VITAMIN E [Concomitant]
  4. VITAMIN C [Concomitant]
  5. ESTRADIOL [Concomitant]
  6. PROGESTERONE [Concomitant]
  7. MOBIC [Concomitant]

REACTIONS (2)
  - DISEASE RECURRENCE [None]
  - NEPHROLITHIASIS [None]
